FAERS Safety Report 5877733-3 (Version None)
Quarter: 2008Q3

REPORT INFORMATION
  Report Type: 
  Country: None (occurrence: None)
  Receive Date: 20080908
  Receipt Date: 20080908
  Transmission Date: 20090109
  Serious: Yes (Life-Threatening, Hospitalization, Other)
  Sender: FDA-Public Use
  Company Number: None

PATIENT
  Sex: Male
  Weight: 86.1834 kg

DRUGS (1)
  1. DIGOXIN [Suspect]
     Dosage: 1 TABLET PER DAY
     Dates: start: 20050115, end: 20080908

REACTIONS (2)
  - DYSPNOEA [None]
  - HEART RATE IRREGULAR [None]
